FAERS Safety Report 24348208 (Version 1)
Quarter: 2024Q3

REPORT INFORMATION
  Report Type: Spontaneous
  Country: US (occurrence: US)
  Receive Date: 20240923
  Receipt Date: 20240923
  Transmission Date: 20241016
  Serious: No
  Sender: ABBVIE
  Company Number: US-ABBVIE-5930376

PATIENT
  Sex: Male

DRUGS (2)
  1. VRAYLAR [Suspect]
     Active Substance: CARIPRAZINE
     Indication: Bipolar I disorder
     Route: 048
  2. VRAYLAR [Suspect]
     Active Substance: CARIPRAZINE
     Indication: Bipolar I disorder
     Route: 048

REACTIONS (6)
  - Anger [Unknown]
  - Delusional disorder, unspecified type [Unknown]
  - Wrong technique in product usage process [Unknown]
  - Impulsive behaviour [Unknown]
  - Narcissistic personality disorder [Unknown]
  - Mania [Unknown]
